FAERS Safety Report 5644610-2 (Version None)
Quarter: 2008Q1

REPORT INFORMATION
  Report Type: 
  Country: None (occurrence: None)
  Receive Date: 20080229
  Receipt Date: 20070409
  Transmission Date: 20080703
  Serious: No
  Sender: FDA-Public Use
  Company Number: A0646268A

PATIENT
  Age: 56 Year
  Sex: Female

DRUGS (6)
  1. VALTREX [Suspect]
     Indication: GENITAL HERPES
     Dosage: 500MG PER DAY
     Route: 048
  2. SYNTHROID [Concomitant]
  3. FOSAMAX [Concomitant]
  4. METOPROLOL TARTRATE [Concomitant]
  5. TOPROL [Concomitant]
  6. ASPIRIN [Concomitant]

REACTIONS (1)
  - IMMUNODEFICIENCY [None]
